FAERS Safety Report 6446224-3 (Version None)
Quarter: 2009Q4

REPORT INFORMATION
  Report Type: 
  Country: None (occurrence: None)
  Receive Date: 20091119
  Receipt Date: 20091111
  Transmission Date: 20100525
  Serious: Yes (Death)
  Sender: FDA-Public Use
  Company Number: US-WYE-H12115209

PATIENT
  Sex: Male

DRUGS (11)
  1. EFFEXOR XR [Suspect]
     Indication: DEPRESSION
     Route: 048
     Dates: start: 20081212, end: 20081228
  2. EFFEXOR XR [Suspect]
     Route: 048
     Dates: start: 20081229, end: 20081229
  3. METOPROLOL [Concomitant]
     Dosage: 50 MG, FREQUENCY NOT SPECIFIED
  4. PLAVIX [Concomitant]
     Dosage: 75 MG, FREQUENCY NOT SPECIFIED
  5. ZEGERID [Concomitant]
     Dosage: UNKNOWN
  6. DIOVAN [Concomitant]
     Dosage: UNKNOWN
  7. LASIX [Concomitant]
     Dosage: 20 MG, FREQUENCY NOT SPECIFIED
  8. POTASSIUM CHLORIDE [Concomitant]
     Dosage: UNKNOWN
  9. NIASPAN [Concomitant]
     Dosage: UNKNOWN
  10. CRESTOR [Concomitant]
     Dosage: 10 MG, FREQUENCY NOT SPECIFIED
  11. ASPIRIN [Concomitant]
     Dosage: 81 MG, FREQUENCY NOT SPECIFIED

REACTIONS (4)
  - ANXIETY [None]
  - COMPLETED SUICIDE [None]
  - GUN SHOT WOUND [None]
  - RESTLESSNESS [None]
